FAERS Safety Report 5295688-X (Version None)
Quarter: 2007Q2

REPORT INFORMATION
  Report Type: 
  Country: None (occurrence: None)
  Receive Date: 20070413
  Receipt Date: 20070402
  Transmission Date: 20071010
  Serious: Yes (Other)
  Sender: FDA-Public Use
  Company Number: US-PFIZER INC-2005068376

PATIENT
  Sex: Male
  Weight: 65.8 kg

DRUGS (9)
  1. LIPITOR [Suspect]
     Indication: HYPERLIPIDAEMIA
     Route: 048
     Dates: start: 20040205, end: 20050201
  2. LIPITOR [Suspect]
     Indication: CORONARY ARTERY DISEASE
  3. NORVASC [Concomitant]
     Route: 048
  4. LISINOPRIL W/HYDROCHLOROTHIAZIDE [Concomitant]
     Route: 048
  5. ASPIRIN [Concomitant]
     Route: 048
  6. ACETYLSALICYLIC ACID SRT [Concomitant]
     Route: 048
  7. ZIAC [Concomitant]
     Route: 048
  8. ALL OTHER THERAPEUTIC PRODUCTS [Concomitant]
     Route: 048
  9. CENTRUM SILVER [Concomitant]
     Route: 048

REACTIONS (8)
  - ARTHRALGIA [None]
  - ARTHROPATHY [None]
  - BLOOD CHOLESTEROL INCREASED [None]
  - CARDIOVASCULAR DISORDER [None]
  - MYALGIA [None]
  - PAIN IN EXTREMITY [None]
  - PHYSICAL DISABILITY [None]
  - TENSION [None]
